FAERS Safety Report 10681219 (Version 2)
Quarter: 2015Q1

REPORT INFORMATION
  Report Type: Spontaneous
  Country: JP (occurrence: JP)
  Receive Date: 20141230
  Receipt Date: 20150311
  Transmission Date: 20150720
  Serious: Yes (Other)
  Sender: FDA-Public Use
  Company Number: PHHY2014JP169169

PATIENT
  Age: 60 Year
  Sex: Male

DRUGS (1)
  1. ZOLEDRONIC ACID [Suspect]
     Active Substance: ZOLEDRONIC ACID
     Indication: METASTASES TO BONE
     Dosage: UNK
     Route: 048
     Dates: start: 201001

REACTIONS (6)
  - Hypoaesthesia oral [Recovered/Resolved]
  - Purulent discharge [Recovered/Resolved]
  - Osteonecrosis of jaw [Unknown]
  - Primary sequestrum [Unknown]
  - Exposed bone in jaw [Recovered/Resolved]
  - Gingival swelling [Recovered/Resolved]
